FAERS Safety Report 9501866 (Version 1)
Quarter: 2013Q3

REPORT INFORMATION
  Report Type: Spontaneous
  Country: HU (occurrence: HU)
  Receive Date: 20130905
  Receipt Date: 20130905
  Transmission Date: 20140515
  Serious: Yes (Other)
  Sender: FDA-Public Use
  Company Number: HU-VERTEX PHARMACEUTICALS INC-2013-009312

PATIENT
  Age: 55 Year
  Sex: Male

DRUGS (4)
  1. INCIVO [Suspect]
     Indication: HEPATITIS C
     Dosage: UNK UNK, BID
     Dates: start: 20130613
  2. REBETOL [Suspect]
     Indication: HEPATITIS C
     Dosage: DOSAGE FORM: TABLET, 6 TABLETS
     Dates: start: 20130613
  3. REBETOL [Suspect]
     Dosage: DOSAGE FORM: TABLET
  4. PEGINTRON [Concomitant]
     Dates: start: 20130613

REACTIONS (3)
  - Phlebitis superficial [Unknown]
  - Fatigue [Unknown]
  - Haemoglobin decreased [Unknown]
